FAERS Safety Report 13806553 (Version 6)
Quarter: 2017Q4

REPORT INFORMATION
  Report Type: Spontaneous
  Country: JP (occurrence: JP)
  Receive Date: 20170728
  Receipt Date: 20171228
  Transmission Date: 20180320
  Serious: Yes (Death, Other)
  Sender: FDA-Public Use
  Company Number: JP-009507513-1707JPN001952J

PATIENT
  Age: 68 Year
  Sex: Male
  Weight: 51 kg

DRUGS (9)
  1. FUROSEMIDE. [Concomitant]
     Active Substance: FUROSEMIDE
     Dosage: 2.0 ML, QD
     Route: 051
     Dates: start: 20170622, end: 20170703
  2. TAKEPRON [Concomitant]
     Active Substance: LANSOPRAZOLE
     Indication: PROPHYLAXIS
     Dosage: 1.0 DF, QD
     Route: 042
     Dates: start: 20170606, end: 20170703
  3. SAMSCA [Concomitant]
     Active Substance: TOLVAPTAN
     Indication: LUNG ADENOCARCINOMA
     Dosage: 7.5 MG, QD
     Route: 048
     Dates: start: 20170622, end: 20170626
  4. LASIX [Concomitant]
     Active Substance: FUROSEMIDE
     Indication: LUNG ADENOCARCINOMA
     Dosage: 10.0 ML, QD
     Route: 051
     Dates: start: 20170617, end: 20170621
  5. FUROSEMIDE. [Concomitant]
     Active Substance: FUROSEMIDE
     Indication: LUNG ADENOCARCINOMA
     Dosage: 2.0 ML, QD
     Route: 051
     Dates: end: 20170616
  6. FENTOS [Concomitant]
     Active Substance: FENTANYL
     Indication: LUNG ADENOCARCINOMA
     Dosage: 3.0 MG, QD
     Route: 062
     Dates: end: 20170625
  7. KEYTRUDA [Suspect]
     Active Substance: PEMBROLIZUMAB
     Indication: LUNG ADENOCARCINOMA
     Dosage: 200 MG, Q3W
     Route: 041
     Dates: start: 20170601
  8. HEPALIN (ARTEMISININ) [Concomitant]
     Indication: LUNG ADENOCARCINOMA
     Dosage: 10.0 ML, QD
     Route: 051
     Dates: end: 20170703
  9. ROPION [Concomitant]
     Active Substance: FLURBIPROFEN AXETIL
     Indication: LUNG ADENOCARCINOMA
     Dosage: 5.0 ML, BID
     Route: 042
     Dates: start: 20170606, end: 20170703

REACTIONS (1)
  - Multiple organ dysfunction syndrome [Fatal]

NARRATIVE: CASE EVENT DATE: 20170626
